FAERS Safety Report 21394643 (Version 1)
Quarter: 2022Q3

REPORT INFORMATION
  Report Type: Spontaneous
  Country: DE (occurrence: DE)
  Receive Date: 20220930
  Receipt Date: 20220930
  Transmission Date: 20221027
  Serious: Yes (Hospitalization, Other)
  Sender: FDA-Public Use
  Company Number: DE-ADRED-08204-01

PATIENT
  Age: 75 Year
  Sex: Male

DRUGS (8)
  1. CEFUROXIME [Suspect]
     Active Substance: CEFUROXIME
     Indication: Product used for unknown indication
     Dosage: UNK
     Route: 048
  2. MITOMYCIN [Suspect]
     Active Substance: MITOMYCIN
     Indication: Product used for unknown indication
     Dosage: 20 MILLIGRAM (ACCORDING TO THE SCHEME)
     Route: 043
  3. CANDESARTAN [Concomitant]
     Active Substance: CANDESARTAN
     Indication: Product used for unknown indication
     Dosage: 8 MILLIGRAM, ONCE A DAY
     Route: 048
  4. ENOXAPARIN [Concomitant]
     Active Substance: ENOXAPARIN
     Indication: Product used for unknown indication
     Dosage: 40 MILLIGRAM, ONCE A DAY (PRE-FILLED SYRINGES)
     Route: 058
  5. POLYETHYLENE GLYCOLS [Concomitant]
     Active Substance: POLYETHYLENE GLYCOLS
     Indication: Product used for unknown indication
     Dosage: 13.125 GRAM, ONCE A DAY
     Route: 048
  6. METOPROLOL [Concomitant]
     Active Substance: METOPROLOL
     Indication: Product used for unknown indication
     Dosage: 47.5 MILLIGRAM, ONCE A DAY
     Route: 048
  7. METAMIZOL [Concomitant]
     Active Substance: METAMIZOLE SODIUM
     Indication: Product used for unknown indication
     Dosage: 500 MILLIGRAM, NEED
     Route: 048
  8. KALIUMIODID BC [Concomitant]
     Indication: Product used for unknown indication
     Dosage: 0.131 MILLIGRAM
     Route: 048

REACTIONS (4)
  - Urinary retention [Unknown]
  - Pyrexia [Unknown]
  - Dysuria [Unknown]
  - Pollakiuria [Unknown]
